FAERS Safety Report 8333861-4 (Version None)
Quarter: 2012Q2

REPORT INFORMATION
  Report Type: 
  Country: None (occurrence: None)
  Receive Date: 20120503
  Receipt Date: 20110105
  Transmission Date: 20120825
  Serious: No
  Sender: FDA-Public Use
  Company Number: US-TEVA-2011000079

PATIENT
  Age: 53 Year
  Sex: Female
  Weight: 68.1 kg

DRUGS (4)
  1. LAMICTAL [Concomitant]
  2. MIGRELIEF (OTC) [Concomitant]
  3. NUVIGIL [Suspect]
     Indication: HYPERSOMNIA
     Dosage: 250 MILLIGRAM;
     Route: 048
  4. BIRTH CONTROL PILLS [Concomitant]

REACTIONS (4)
  - ANXIETY [None]
  - LOGORRHOEA [None]
  - DRUG EFFECT INCREASED [None]
  - NASOPHARYNGITIS [None]
